FAERS Safety Report 22136562 (Version 1)
Quarter: 2023Q1

REPORT INFORMATION
  Report Type: Spontaneous
  Country: CN (occurrence: CN)
  Receive Date: 20230324
  Receipt Date: 20230324
  Transmission Date: 20230417
  Serious: Yes (Hospitalization)
  Sender: FDA-Public Use
  Company Number: CN-SA-SAC20230322000327

PATIENT
  Age: 63 Year
  Sex: Male

DRUGS (1)
  1. PLAVIX [Suspect]
     Active Substance: CLOPIDOGREL BISULFATE
     Indication: Antiplatelet therapy
     Dosage: 75 MG, QD
     Route: 048
     Dates: start: 20230202, end: 20230207

REACTIONS (3)
  - Chest pain [Recovering/Resolving]
  - Device occlusion [Unknown]
  - Drug resistance [Unknown]

NARRATIVE: CASE EVENT DATE: 20230207
